FAERS Safety Report 5704067-X (Version None)
Quarter: 2008Q2

REPORT INFORMATION
  Report Type: 
  Country: None (occurrence: None)
  Receive Date: 20080414
  Receipt Date: 20080331
  Transmission Date: 20081010
  Serious: Yes (Death, Hospitalization)
  Sender: FDA-Public Use
  Company Number: US-JNJFOC-20080403412

PATIENT
  Sex: Female

DRUGS (2)
  1. DOXIL [Suspect]
     Route: 042
  2. DOXIL [Suspect]
     Indication: BREAST CANCER
     Route: 042

REACTIONS (1)
  - DEATH [None]
